FAERS Safety Report 9309980 (Version 1)
Quarter: 2013Q2

REPORT INFORMATION
  Report Type: Spontaneous
  Country: IT (occurrence: IT)
  Receive Date: 20130527
  Receipt Date: 20130527
  Transmission Date: 20140414
  Serious: Yes (Other)
  Sender: FDA-Public Use
  Company Number: IT-AMGEN-ITASP2013030721

PATIENT
  Age: 43 Year
  Sex: Female

DRUGS (5)
  1. FILGRASTIM [Suspect]
     Indication: NEUTROPENIA
     Dosage: 1 POSOLOGIC UNIT, CYCLIC
     Route: 058
     Dates: start: 20130221, end: 20130224
  2. SOLDESAM [Concomitant]
     Dosage: UNK
  3. TACHIDOL [Concomitant]
     Dosage: UNK
  4. CARBOPLATINO [Concomitant]
     Dosage: UNK
  5. GEMCITABINA [Concomitant]
     Dosage: UNK

REACTIONS (3)
  - Fistula [Unknown]
  - Subcutaneous abscess [Unknown]
  - Acute febrile neutrophilic dermatosis [Recovering/Resolving]
